FAERS Safety Report 6976286-6 (Version None)
Quarter: 2010Q3

REPORT INFORMATION
  Report Type: 
  Country: None (occurrence: None)
  Receive Date: 20100910
  Receipt Date: 20100831
  Transmission Date: 20110219
  Serious: Yes (Hospitalization)
  Sender: FDA-Public Use
  Company Number: ZA-SANOFI-AVENTIS-2010SA051785

PATIENT
  Age: 56 Year
  Sex: Female

DRUGS (8)
  1. ELOXATIN [Suspect]
     Route: 042
     Dates: start: 20100805, end: 20100805
  2. XELODA [Concomitant]
     Dates: start: 20100805
  3. MAGNESIUM SULFATE [Concomitant]
     Dates: start: 20100805
  4. CALCIUM GLUCONATE [Concomitant]
     Dates: start: 20100805
  5. PALONOSETRON [Concomitant]
  6. BETANOID [Concomitant]
  7. CLOPAMON ^INTRAMED^ [Concomitant]
  8. CYCLIZINE HYDROCHLORIDE [Concomitant]

REACTIONS (3)
  - CEREBROVASCULAR ACCIDENT [None]
  - DEHYDRATION [None]
  - DIARRHOEA [None]
